FAERS Safety Report 7655608-7 (Version None)
Quarter: 2011Q3

REPORT INFORMATION
  Report Type: 
  Country: None (occurrence: None)
  Receive Date: 20110804
  Receipt Date: 20080811
  Transmission Date: 20111222
  Serious: Yes (Hospitalization, Other)
  Sender: FDA-Public Use
  Company Number: US-BAYER-200830373NA

PATIENT
  Age: 65 Year
  Sex: Male
  Weight: 77.098 kg

DRUGS (23)
  1. PROTAMINE [Concomitant]
     Dosage: UNK
     Route: 042
     Dates: start: 20070215, end: 20070215
  2. TRASYLOL [Suspect]
     Indication: CORONARY ARTERY BYPASS
     Dosage: 200 ML (LOADING DOSE)
     Route: 042
     Dates: start: 20070215, end: 20070215
  3. FENTANYL [Concomitant]
     Dosage: UNK
     Route: 042
     Dates: start: 20070215, end: 20070215
  4. ETOMIDATE [Concomitant]
     Dosage: UNK
     Route: 042
     Dates: start: 20070215, end: 20070215
  5. MONOPRIL [Concomitant]
     Dosage: UNK
     Dates: start: 20010101
  6. TRASYLOL [Suspect]
     Indication: PRODUCT USED FOR UNKNOWN INDICATION
     Dosage: 1 ML (TEST DOSE)
     Route: 042
     Dates: start: 20070215, end: 20070215
  7. NITROGLYCERIN [Concomitant]
     Dosage: UNK
     Route: 042
     Dates: start: 20070215, end: 20070215
  8. INSULIN [Concomitant]
     Dosage: UNK
     Route: 042
     Dates: start: 20070215, end: 20070215
  9. DOPAMINE HCL [Concomitant]
     Dosage: UNK
     Route: 042
     Dates: start: 20070215, end: 20070215
  10. VASOPRESSIN [Concomitant]
     Dosage: UNK
     Route: 042
     Dates: start: 20070215, end: 20070215
  11. ASPIRIN [Concomitant]
     Dosage: 325 MG, QD
     Route: 048
     Dates: end: 20070106
  12. SODIUM BICARBONATE [Concomitant]
     Dosage: 50, UNK
     Route: 042
  13. HEPARIN [Concomitant]
     Dosage: 10, UNK
     Route: 042
  14. TRASYLOL [Suspect]
     Indication: MITRAL VALVE REPLACEMENT
     Dosage: 200 ML PUMP PRIME (TEST DOSE)
     Route: 042
     Dates: start: 20070215, end: 20070215
  15. METOPROLOL TARTRATE [Concomitant]
     Dosage: 100 MG, QD
     Route: 048
     Dates: start: 20070108
  16. LOVENOX [Concomitant]
     Dosage: UNK
     Route: 058
     Dates: end: 20070105
  17. LIDOCAINE [Concomitant]
     Dosage: 20 MG, UNK
     Route: 042
  18. LISINOPRIL AND HYDROCHLOROTHIAZIDE [Concomitant]
     Dosage: 20/12.5 MG, QD
     Route: 048
  19. FELDENE [Concomitant]
     Dosage: UNK
     Dates: start: 19840101
  20. INDOCIN [Concomitant]
     Dosage: UNK
     Dates: start: 19930101
  21. HYTRIN [Concomitant]
     Dosage: 5 MG, QD
     Route: 048
     Dates: start: 20070108
  22. ALLOPURINOL [Concomitant]
     Dosage: 100 MG, QD
     Route: 048
  23. CELEBREX [Concomitant]
     Dosage: UNK
     Dates: start: 20020101, end: 20030101

REACTIONS (12)
  - FEAR [None]
  - UNEVALUABLE EVENT [None]
  - MULTI-ORGAN FAILURE [None]
  - RENAL INJURY [None]
  - ANXIETY [None]
  - INJURY [None]
  - DIABETES MELLITUS [None]
  - STRESS [None]
  - ANHEDONIA [None]
  - RENAL FAILURE [None]
  - RENAL IMPAIRMENT [None]
  - PAIN [None]
